FAERS Safety Report 18079024 (Version 3)
Quarter: 2020Q3

REPORT INFORMATION
  Report Type: Spontaneous
  Country: US (occurrence: US)
  Receive Date: 20200728
  Receipt Date: 20200803
  Transmission Date: 20201103
  Serious: No
  Sender: FDA-Public Use
  Company Number: US-PFIZER INC-2020282065

PATIENT
  Age: 69 Year
  Sex: Female
  Weight: 83.46 kg

DRUGS (8)
  1. NARDIL [Suspect]
     Active Substance: PHENELZINE SULFATE
     Indication: ANXIETY
     Dosage: 4 DF, DAILY
  2. NARDIL [Interacting]
     Active Substance: PHENELZINE SULFATE
     Indication: DEPRESSION
     Dosage: 3 DF, DAILY
  3. NARDIL [Interacting]
     Active Substance: PHENELZINE SULFATE
     Dosage: 2 DF, DAILY
  4. LIPITOR [Concomitant]
     Active Substance: ATORVASTATIN CALCIUM
     Dosage: UNK
  5. NARDIL [Interacting]
     Active Substance: PHENELZINE SULFATE
     Dosage: 15 MG, ALTERNATE DAY (TABLETS BY MOUTH EVERY OTHER DAY)
     Route: 048
  6. XANAX [Concomitant]
     Active Substance: ALPRAZOLAM
     Indication: ANXIETY
     Dosage: UNK, 1X/DAY
  7. NARDIL [Interacting]
     Active Substance: PHENELZINE SULFATE
     Dosage: 15 DF, DAILY
  8. NARDIL [Interacting]
     Active Substance: PHENELZINE SULFATE
     Dosage: UNK, ALTERNATE DAY (EVERY OTHER DAY)

REACTIONS (4)
  - Drug interaction [Unknown]
  - Intentional product use issue [Not Recovered/Not Resolved]
  - Expired product administered [Unknown]
  - Overdose [Unknown]

NARRATIVE: CASE EVENT DATE: 20200713
